FAERS Safety Report 14875531 (Version 2)
Quarter: 2018Q2

REPORT INFORMATION
  Report Type: Spontaneous
  Country: US (occurrence: US)
  Receive Date: 20180510
  Receipt Date: 20180614
  Transmission Date: 20180711
  Serious: Yes (Death, Other)
  Sender: FDA-Public Use
  Company Number: US-BRISTOL-MYERS SQUIBB COMPANY-BMS-2018-042548

PATIENT
  Sex: Male

DRUGS (1)
  1. SPRYCEL [Suspect]
     Active Substance: DASATINIB
     Indication: ADRENAL GLAND CANCER
     Dosage: 40 MG, QD
     Route: 048
     Dates: start: 20170421, end: 20171001

REACTIONS (5)
  - Drug administered to patient of inappropriate age [Unknown]
  - Respiratory failure [Fatal]
  - Acute hepatic failure [Fatal]
  - Malignant neoplasm progression [Fatal]
  - Cervical cord compression [Fatal]

NARRATIVE: CASE EVENT DATE: 2017
